FAERS Safety Report 5366385-7 (Version None)
Quarter: 2007Q2

REPORT INFORMATION
  Report Type: 
  Country: None (occurrence: None)
  Receive Date: 20070622
  Receipt Date: 20070613
  Transmission Date: 20071010
  Serious: Yes (Death, Hospitalization)
  Sender: FDA-Public Use
  Company Number: US-JNJFOC-20070603181

PATIENT
  Sex: Male
  Weight: 99.79 kg

DRUGS (4)
  1. REMICADE [Suspect]
     Indication: COLITIS ULCERATIVE
     Route: 042
  2. PENTASA [Concomitant]
  3. PREDNISONE TAB [Concomitant]
  4. CLARINEX [Concomitant]
     Indication: MULTIPLE ALLERGIES

REACTIONS (6)
  - ABDOMINAL DISTENSION [None]
  - ABDOMINAL PAIN UPPER [None]
  - BILE DUCT CANCER [None]
  - FATIGUE [None]
  - HEPATIC ENZYME INCREASED [None]
  - ORGAN FAILURE [None]
